FAERS Safety Report 12529693 (Version 4)
Quarter: 2016Q4

REPORT INFORMATION
  Report Type: Spontaneous
  Country: JP (occurrence: JP)
  Receive Date: 20160706
  Receipt Date: 20161021
  Transmission Date: 20170207
  Serious: Yes (Hospitalization, Other)
  Sender: FDA-Public Use
  Company Number: JP-009507513-1607JPN000799

PATIENT
  Age: 74 Year
  Sex: Female
  Weight: 44 kg

DRUGS (8)
  1. VASOLAN [Suspect]
     Active Substance: VERAPAMIL HYDROCHLORIDE
     Dosage: 360 MG DAILY, DIVIDED DOSE FREQUENCY UNKNOWN
     Route: 065
  2. TAKEPRON [Concomitant]
     Active Substance: LANSOPRAZOLE
     Dosage: 15 MG DAILY, DIVIDED DOSE FREQUENCY UNKNOWN
     Route: 065
  3. MAINTATE [Suspect]
     Active Substance: BISOPROLOL FUMARATE
     Dosage: 1.25 MG DAILY, DIVIDED DOSE FREQUENCY UNKNOWN, PERORAL PREPARATION IN UNKNOWN DOSAGE FORM (POR)
     Route: 048
  4. REBETOL [Suspect]
     Active Substance: RIBAVIRIN
     Indication: CHRONIC HEPATITIS C
     Dosage: 600 MG DAILY, DIVIDED DOSE FREQUENCY UNKNOWN
     Route: 048
     Dates: start: 20160525
  5. SOVALDI [Suspect]
     Active Substance: SOFOSBUVIR
     Indication: CHRONIC HEPATITIS C
     Dosage: 400 MG, QD
     Route: 048
     Dates: start: 20160525, end: 20160803
  6. CANDESARTAN CILEXETIL. [Concomitant]
     Active Substance: CANDESARTAN CILEXETIL
     Dosage: 2 MG DAILY, DIVIDED DOSE FREQUENCY UNKNOWN
     Route: 048
  7. LASIX [Concomitant]
     Active Substance: FUROSEMIDE
     Dosage: 30 MG DAILY, DIVIDED DOSE FREQUENCY UNKNOWN
     Route: 065
  8. XARELTO [Concomitant]
     Active Substance: RIVAROXABAN
     Dosage: 10 MG DAILY, DIVIDED DOSE FREQUENCY UNKNOWN
     Route: 048

REACTIONS (4)
  - Adams-Stokes syndrome [Unknown]
  - Loss of consciousness [Recovered/Resolved]
  - Loss of consciousness [Unknown]
  - Loss of consciousness [Recovered/Resolved]

NARRATIVE: CASE EVENT DATE: 201606
